FAERS Safety Report 23195703 (Version 2)
Quarter: 2023Q4

REPORT INFORMATION
  Report Type: Spontaneous
  Country: US (occurrence: US)
  Receive Date: 20231117
  Receipt Date: 20231126
  Transmission Date: 20240109
  Serious: Yes (Life-Threatening, Hospitalization, Other)
  Sender: FDA-Public Use
  Company Number: US-BRISTOL-MYERS SQUIBB COMPANY-2023-162369

PATIENT
  Age: 80 Year
  Sex: Male

DRUGS (18)
  1. REVLIMID [Suspect]
     Active Substance: LENALIDOMIDE
     Indication: Diffuse large B-cell lymphoma
  2. ALBUTEROL [Concomitant]
     Active Substance: ALBUTEROL
     Indication: Product use issue
  3. ASPIRIN [Concomitant]
     Active Substance: ASPIRIN
     Indication: Product use issue
  4. ATORVASTATIN [Concomitant]
     Active Substance: ATORVASTATIN
     Indication: Product use issue
  5. ERGOCALCIFEROL [Concomitant]
     Active Substance: ERGOCALCIFEROL
     Indication: Product use issue
  6. VITAMIN B12 [Concomitant]
     Active Substance: CYANOCOBALAMIN
     Indication: Product use issue
  7. IRON [Concomitant]
     Active Substance: IRON
     Indication: Product use issue
  8. FLUTICASONE [Concomitant]
     Active Substance: FLUTICASONE
     Indication: Product use issue
  9. ACETAMINOPHEN\HYDROCODONE [Concomitant]
     Active Substance: ACETAMINOPHEN\HYDROCODONE
     Indication: Product use issue
  10. LISINOPRIL [Concomitant]
     Active Substance: LISINOPRIL
     Indication: Product use issue
  11. MECLIZINE [Concomitant]
     Active Substance: MECLIZINE HYDROCHLORIDE
     Indication: Product use issue
  12. MELATONIN [Concomitant]
     Active Substance: MELATONIN
     Indication: Product use issue
  13. METOPROLOL [Concomitant]
     Active Substance: METOPROLOL
     Indication: Product use issue
  14. VITAMINS NOS [Concomitant]
     Active Substance: VITAMINS
     Indication: Product use issue
  15. OXYCODONE [Concomitant]
     Active Substance: OXYCODONE
     Indication: Product use issue
  16. PREDNISONE [Concomitant]
     Active Substance: PREDNISONE
     Indication: Product use issue
  17. TADALAFIL [Concomitant]
     Active Substance: TADALAFIL
     Indication: Product use issue
  18. OMEPRAZOLE [Concomitant]
     Active Substance: OMEPRAZOLE
     Indication: Product use issue

REACTIONS (4)
  - Cardiac disorder [Unknown]
  - Off label use [Unknown]
  - Septic shock [Unknown]
  - Traumatic lung injury [Unknown]

NARRATIVE: CASE EVENT DATE: 20231115
